FAERS Safety Report 10257544 (Version 2)
Quarter: 2014Q2

REPORT INFORMATION
  Report Type: Report from Study
  Country: PH (occurrence: PH)
  Receive Date: 20140625
  Receipt Date: 20140625
  Transmission Date: 20141212
  Serious: Yes (Other)
  Sender: FDA-Public Use
  Company Number: PHHY2014PH033304

PATIENT
  Sex: Female

DRUGS (4)
  1. TASIGNA [Suspect]
     Indication: CHRONIC MYELOID LEUKAEMIA
     Dosage: 600 MG, DAILY
     Route: 048
     Dates: start: 20130918, end: 20131213
  2. TASIGNA [Suspect]
     Dosage: 450 MG, DAILY
     Route: 048
     Dates: start: 20131213, end: 20140307
  3. TASIGNA [Suspect]
     Dosage: 600 MG, DAILY
     Route: 048
     Dates: start: 20140307
  4. TASIGNA [Suspect]
     Dosage: 800 MG, DAILY
     Route: 048

REACTIONS (4)
  - Thrombocytopenia [Recovered/Resolved]
  - Splenomegaly [Unknown]
  - Pancytopenia [Unknown]
  - Chronic myeloid leukaemia [Unknown]
